FAERS Safety Report 25663354 (Version 2)
Quarter: 2025Q3

REPORT INFORMATION
  Report Type: Spontaneous
  Country: EU (occurrence: EU)
  Receive Date: 20250811
  Receipt Date: 20250902
  Transmission Date: 20251021
  Serious: Yes (Hospitalization, Other)
  Sender: CSL BEHRING
  Company Number: EU-BEH-2025202037

PATIENT
  Age: 75 Year
  Sex: Female
  Weight: 54 kg

DRUGS (15)
  1. DIFELIKEFALIN ACETATE [Suspect]
     Active Substance: DIFELIKEFALIN ACETATE
     Indication: Pruritus
     Route: 065
     Dates: start: 20250314, end: 2025
  2. DIFELIKEFALIN ACETATE [Suspect]
     Active Substance: DIFELIKEFALIN ACETATE
     Route: 065
     Dates: start: 20250409, end: 20250609
  3. FUROSEMIDE [Concomitant]
     Active Substance: FUROSEMIDE
  4. CLOPIDOGREL [Concomitant]
     Active Substance: CLOPIDOGREL BISULFATE
  5. NOVORAPID [Concomitant]
     Active Substance: INSULIN ASPART
  6. LANTUS [Concomitant]
     Active Substance: INSULIN GLARGINE
  7. ATORVASTATIN [Concomitant]
     Active Substance: ATORVASTATIN
  8. BISOPROLOL [Concomitant]
     Active Substance: BISOPROLOL
  9. KAYEXALATE [Concomitant]
     Active Substance: SODIUM POLYSTYRENE SULFONATE
  10. OXAZEPAM [Concomitant]
     Active Substance: OXAZEPAM
  11. RENVELA [Concomitant]
     Active Substance: SEVELAMER CARBONATE
  12. PERINDOPRIL [Concomitant]
     Active Substance: PERINDOPRIL
  13. CALCIFEDIOL [Concomitant]
     Active Substance: CALCIFEDIOL
  14. EPOETIN BETA [Concomitant]
     Active Substance: ERYTHROPOIETIN
  15. VENOFER [Concomitant]
     Active Substance: IRON SUCROSE

REACTIONS (3)
  - Sepsis [Unknown]
  - Abnormal behaviour [Recovered/Resolved]
  - Somnolence [Recovered/Resolved]

NARRATIVE: CASE EVENT DATE: 20250101
